FAERS Safety Report 5195135-2 (Version None)
Quarter: 2006Q4

REPORT INFORMATION
  Report Type: 
  Country: None (occurrence: None)
  Receive Date: 20061229
  Receipt Date: 20040312
  Transmission Date: 20070319
  Serious: Yes (Other)
  Sender: FDA-Public Use
  Company Number: US-PFIZER INC-2004016877

PATIENT
  Sex: Male
  Weight: 97.1 kg

DRUGS (9)
  1. ATORVASTATIN CALCIUM [Suspect]
     Indication: CORONARY ARTERY DISEASE
     Route: 048
     Dates: start: 20031217, end: 20040113
  2. ATORVASTATIN CALCIUM [Suspect]
     Route: 048
     Dates: start: 20040114, end: 20040310
  3. METOPROLOL SUCCINATE [Concomitant]
     Route: 048
  4. ASPIRIN [Concomitant]
     Route: 048
  5. PLAVIX [Concomitant]
     Route: 048
  6. ATORVASTATIN CALCIUM [Concomitant]
     Route: 048
  7. NAPROXEN [Concomitant]
     Route: 048
  8. NITROGLYCERIN [Concomitant]
     Route: 060
  9. HYDROCODONE BITARTRATE [Concomitant]
     Route: 048

REACTIONS (18)
  - ARTHRALGIA [None]
  - BACK PAIN [None]
  - BLOOD CREATINE PHOSPHOKINASE INCREASED [None]
  - BONE PAIN [None]
  - CHEST PAIN [None]
  - DIZZINESS [None]
  - DYSPNOEA [None]
  - ELECTROCARDIOGRAM T WAVE ABNORMAL [None]
  - EYELID PTOSIS [None]
  - FATIGUE [None]
  - HYPOTENSION [None]
  - MUSCLE TWITCHING [None]
  - MUSCULOSKELETAL PAIN [None]
  - MYALGIA [None]
  - SCAN MYOCARDIAL PERFUSION ABNORMAL [None]
  - TINNITUS [None]
  - VENTRICULAR HYPERTROPHY [None]
  - VISUAL ACUITY REDUCED [None]
